FAERS Safety Report 16020874 (Version 1)
Quarter: 2019Q1

REPORT INFORMATION
  Report Type: Spontaneous
  Country: US (occurrence: US)
  Receive Date: 20190201
  Receipt Date: 20190201
  Transmission Date: 20190418
  Serious: No
  Sender: FDA-Public Use
  Company Number: None

PATIENT
  Age: 92 Year
  Sex: Male
  Weight: 90.72 kg

DRUGS (9)
  1. AMOXICILLIN. [Suspect]
     Active Substance: AMOXICILLIN
     Indication: SECRETION DISCHARGE
  2. SPIRONOLACTONE. [Concomitant]
     Active Substance: SPIRONOLACTONE
  3. C [Concomitant]
  4. AMOXICILLIN. [Suspect]
     Active Substance: AMOXICILLIN
     Indication: OROPHARYNGEAL PAIN
  5. ZINC. [Concomitant]
     Active Substance: ZINC
  6. AMOXICILLIN. [Suspect]
     Active Substance: AMOXICILLIN
     Indication: NASOPHARYNGITIS
     Dosage: ?          QUANTITY:20 DF DOSAGE FORM;?
     Route: 048
  7. GABAPENTEN [Concomitant]
     Active Substance: GABAPENTIN
  8. JANTOVEN [Concomitant]
     Active Substance: WARFARIN SODIUM
  9. IRON [Concomitant]
     Active Substance: IRON

REACTIONS (2)
  - Product size issue [None]
  - Choking [None]

NARRATIVE: CASE EVENT DATE: 20190125
